FAERS Safety Report 9493223 (Version 3)
Quarter: 2014Q2

REPORT INFORMATION
  Report Type: Report from Study
  Country: JP (occurrence: JP)
  Receive Date: 20130902
  Receipt Date: 20140411
  Transmission Date: 20141212
  Serious: Yes (Hospitalization)
  Sender: FDA-Public Use
  Company Number: PHHY2013JP085813

PATIENT
  Age: 60 Year
  Sex: Male

DRUGS (17)
  1. LEPONEX / CLOZARIL [Suspect]
     Indication: SCHIZOPHRENIA
     Route: 048
     Dates: start: 20121016
  2. LEPONEX / CLOZARIL [Suspect]
     Dosage: 500 MG, UNK
     Route: 048
     Dates: end: 20130803
  3. LEPONEX / CLOZARIL [Suspect]
     Dosage: 12.5 MG, UNK
     Route: 048
     Dates: start: 20130809, end: 20130809
  4. LEPONEX / CLOZARIL [Suspect]
     Dosage: 25 MG, UNK
     Route: 048
     Dates: start: 20130810, end: 20130813
  5. HALOPERIDOL [Concomitant]
     Indication: SCHIZOPHRENIA
     Dosage: UNK UKN, UNK
  6. MAGNESIUM OXIDE [Concomitant]
     Indication: GASTRITIS
     Dosage: 1.5 MG, UNK
     Route: 048
     Dates: end: 20130808
  7. REBAMIPIDE [Concomitant]
     Indication: GASTRITIS
     Dosage: 300 MG, UNK
     Route: 048
     Dates: end: 20130808
  8. METOCLOPRAMIDE [Concomitant]
     Indication: GASTRITIS
     Dosage: 15 MG, UNK
     Route: 048
     Dates: end: 20130808
  9. OMEPRAZOLE [Concomitant]
     Indication: GASTRITIS
     Dosage: 20 MG, UNK
     Route: 048
     Dates: end: 20130808
  10. MECOBALAMIN [Concomitant]
     Indication: SCHIZOPHRENIA
     Route: 048
     Dates: start: 20130517, end: 20130527
  11. PREGABALIN [Concomitant]
     Indication: GASTRITIS
     Dosage: 75 MG, UNK
     Route: 048
     Dates: start: 20130528
  12. PREGABALIN [Concomitant]
     Indication: SCHIZOPHRENIA
     Dosage: 150 MG, UNK
     Route: 048
     Dates: end: 20130808
  13. KAKKONTO [Concomitant]
     Indication: GASTRITIS
     Dosage: 7500 MG, UNK
     Route: 048
     Dates: start: 20130706, end: 20130712
  14. TRANEXAMIC ACID [Concomitant]
     Indication: GASTRITIS
     Dosage: 750 MG, UNK
     Route: 048
     Dates: start: 20130710, end: 20130808
  15. CLARITHROMYCIN [Concomitant]
     Dosage: 400 MG, UNK
     Route: 048
     Dates: start: 20130801
  16. ETIZOLAM [Concomitant]
     Indication: SCHIZOPHRENIA
     Dosage: 1 MG, UNK
     Route: 048
  17. SENNOSIDE [Concomitant]
     Indication: GASTRITIS
     Dosage: 24 MG, UNK
     Route: 048

REACTIONS (11)
  - Ileus [Recovered/Resolved]
  - Constipation [Unknown]
  - Abdominal pain [Unknown]
  - Abdominal distension [Unknown]
  - Asthenia [Unknown]
  - Monocyte count increased [Unknown]
  - Haemoglobin decreased [Unknown]
  - Body temperature decreased [Unknown]
  - Blood pressure decreased [Unknown]
  - Blood glucose increased [Unknown]
  - Neutrophil percentage increased [Unknown]
